FAERS Safety Report 6710030-2 (Version None)
Quarter: 2010Q2

REPORT INFORMATION
  Report Type: 
  Country: None (occurrence: None)
  Receive Date: 20100503
  Receipt Date: 20100503
  Transmission Date: 20101027
  Serious: No
  Sender: FDA-Public Use
  Company Number: None

PATIENT
  Sex: Female
  Weight: 46.2669 kg

DRUGS (1)
  1. CHILDREN'S MOTRIN [Suspect]
     Indication: PROCEDURAL PAIN
     Dosage: 2 1/2 TSP 2 PO (1 DOSE EVERY 8 HOURS)
     Route: 048
     Dates: start: 20100429, end: 20100430

REACTIONS (3)
  - ABDOMINAL PAIN UPPER [None]
  - RASH PAPULAR [None]
  - SOMNOLENCE [None]
